FAERS Safety Report 11292717 (Version 1)
Quarter: 2015Q3

REPORT INFORMATION
  Report Type: Spontaneous
  Country: US (occurrence: US)
  Receive Date: 20150722
  Receipt Date: 20150722
  Transmission Date: 20151125
  Serious: No
  Sender: FDA-Public Use
  Company Number: US-PFIZER INC-2015240052

PATIENT
  Sex: Male

DRUGS (3)
  1. LYRICA [Suspect]
     Active Substance: PREGABALIN
     Dosage: 2 DF, DAILY (SOME DAYS ONLY TAKES 2 )
  2. LYRICA [Suspect]
     Active Substance: PREGABALIN
     Dosage: 3 DF, DAILY (3 A DAY)
  3. LYRICA [Suspect]
     Active Substance: PREGABALIN
     Indication: INTERVERTEBRAL DISC PROTRUSION
     Dosage: 1 DF, 1X/DAY (1 A DAY FOR 3 DAYS)

REACTIONS (3)
  - Pre-existing condition improved [Unknown]
  - Dizziness [Recovered/Resolved]
  - Therapeutic response unexpected [Unknown]
